FAERS Safety Report 20972772 (Version 1)
Quarter: 2022Q2

REPORT INFORMATION
  Report Type: Spontaneous
  Country: US (occurrence: US)
  Receive Date: 20220617
  Receipt Date: 20220617
  Transmission Date: 20220721
  Serious: No
  Sender: FDA-Public Use
  Company Number: US-STRIDES ARCOLAB LIMITED-2022SP004732

PATIENT
  Age: 19 Year
  Sex: Female

DRUGS (6)
  1. DEXAMETHASONE [Suspect]
     Active Substance: DEXAMETHASONE
     Indication: Radiation necrosis
     Dosage: 1 MILLIGRAM PER DAY (FOR UNKNOWN USE)
     Route: 065
  2. DEXAMETHASONE [Suspect]
     Active Substance: DEXAMETHASONE
     Dosage: UNK (REQUIRING DEXAMETHASONE INTERMITTENTLY)
     Route: 065
  3. DEXAMETHASONE [Suspect]
     Active Substance: DEXAMETHASONE
     Dosage: UNK (TAPPERED OFF)
     Route: 065
  4. DEXAMETHASONE [Suspect]
     Active Substance: DEXAMETHASONE
     Dosage: 2 MILLIGRAM, QOD, 2 WEEKS
     Route: 065
  5. BEVACIZUMAB [Concomitant]
     Active Substance: BEVACIZUMAB
     Indication: Radiation necrosis
     Dosage: 5 MILLIGRAM/KILOGRAM(TWO BEVACIZUMAB INFUSIONS 2 WEEKS APART)
     Route: 065
  6. KEPPRA [Concomitant]
     Active Substance: LEVETIRACETAM
     Indication: Seizure
     Dosage: UNK
     Route: 065

REACTIONS (6)
  - Sleep disorder [Recovered/Resolved]
  - Weight increased [Unknown]
  - Fatigue [Recovered/Resolved]
  - Erythema [Unknown]
  - Erythema [Unknown]
  - Off label use [Unknown]
